FAERS Safety Report 18946401 (Version 1)
Quarter: 2021Q1

REPORT INFORMATION
  Report Type: Spontaneous
  Country: US (occurrence: US)
  Receive Date: 20210226
  Receipt Date: 20210226
  Transmission Date: 20210420
  Serious: Yes (Other)
  Sender: FDA-Public Use
  Company Number: US-PIRAMAL PHARMA LIMITED-2021-PEL-000124

PATIENT

DRUGS (1)
  1. BACLOFEN. [Suspect]
     Active Substance: BACLOFEN
     Indication: MUSCLE SPASTICITY
     Dosage: 100 MICROGRAM/DAY
     Route: 037

REACTIONS (2)
  - Arachnoiditis [Unknown]
  - Staphylococcal osteomyelitis [Unknown]
